FAERS Safety Report 12210432 (Version 1)
Quarter: 2016Q1

REPORT INFORMATION
  Report Type: Spontaneous
  Country: PT (occurrence: PT)
  Receive Date: 20160325
  Receipt Date: 20160325
  Transmission Date: 20160526
  Serious: Yes (Hospitalization, Other)
  Sender: FDA-Public Use
  Company Number: PT-ACTAVIS-2016-06469

PATIENT
  Sex: Male

DRUGS (2)
  1. VENLAFAXINE (UNKNOWN) [Interacting]
     Active Substance: VENLAFAXINE HYDROCHLORIDE
     Indication: DEPRESSION
     Dosage: 75 MG, DAILY
     Route: 064
  2. ALPRAZOLAM (UNKNOWN) [Suspect]
     Active Substance: ALPRAZOLAM
     Indication: DEPRESSION
     Dosage: 0.5 MG, DAILY
     Route: 064

REACTIONS (6)
  - Ejection fraction decreased [Recovered/Resolved]
  - Mitral valve incompetence [Recovered/Resolved]
  - Ventricular dysfunction [Recovered/Resolved]
  - Foetal exposure during pregnancy [Recovered/Resolved]
  - Drug interaction [Recovered/Resolved]
  - Dilatation ventricular [Recovered/Resolved]
